FAERS Safety Report 11746244 (Version 2)
Quarter: 2015Q4

REPORT INFORMATION
  Report Type: Spontaneous
  Country: US (occurrence: US)
  Receive Date: 20151117
  Receipt Date: 20151228
  Transmission Date: 20160304
  Serious: Yes (Hospitalization, Other)
  Sender: FDA-Public Use
  Company Number: US-HERITAGE PHARMACEUTICALS-2015HTG00057

PATIENT
  Age: 58 Year
  Sex: Female
  Weight: 77.98 kg

DRUGS (9)
  1. INDERAL ER [Concomitant]
     Dosage: 80 MG, 2X/DAY
  2. CELEXA [Concomitant]
     Active Substance: CITALOPRAM HYDROBROMIDE
     Dosage: 25 MG, 2X/DAY
  3. NARATRIPTAN HYDROCHLORIDE. [Suspect]
     Active Substance: NARATRIPTAN HYDROCHLORIDE
     Indication: MIGRAINE
     Dosage: 2.5 MG, UP TO 2X/DAY
     Route: 048
  4. PHENERGAN [Concomitant]
     Active Substance: PROMETHAZINE HYDROCHLORIDE
     Dosage: UNK
  5. SYNTHROID [Concomitant]
     Active Substance: LEVOTHYROXINE SODIUM
     Dosage: .15 MG, 1X/DAY
  6. CLONIDINE. [Concomitant]
     Active Substance: CLONIDINE
     Dosage: UNK, 2X/DAY
  7. BOTOX [Concomitant]
     Active Substance: ONABOTULINUMTOXINA
     Dosage: UNK, 4X/YEAR
     Route: 051
  8. PAMELOR [Concomitant]
     Active Substance: NORTRIPTYLINE HYDROCHLORIDE
     Dosage: 25 MG, 2X/DAY
  9. PRILOSEC [Concomitant]
     Active Substance: OMEPRAZOLE MAGNESIUM
     Dosage: 20 MG, 2X/DAY

REACTIONS (11)
  - Carpal tunnel syndrome [Unknown]
  - Breast cancer [Unknown]
  - Radius fracture [Unknown]
  - Pelvic fracture [Unknown]
  - Fall [Unknown]
  - Knee arthroplasty [Unknown]
  - Pubis fracture [Unknown]
  - Limb operation [Unknown]
  - Wrist fracture [Unknown]
  - Rotator cuff syndrome [Unknown]
  - Shoulder arthroplasty [Unknown]

NARRATIVE: CASE EVENT DATE: 200406
